FAERS Safety Report 5625902-X (Version None)
Quarter: 2008Q1

REPORT INFORMATION
  Report Type: 
  Country: None (occurrence: None)
  Receive Date: 20080213
  Receipt Date: 20080213
  Transmission Date: 20080703
  Serious: Yes (Hospitalization)
  Sender: FDA-Public Use
  Company Number: None

PATIENT
  Age: 40 Year
  Sex: Female
  Weight: 66.2252 kg

DRUGS (1)
  1. ONE A DAY WEIGHTSTMART   ONE TABLET DAILY WITH FOOD   BAYER HEALTHCARE [Suspect]
     Indication: VITAMIN SUPPLEMENTATION
     Dosage: ONE TABLET  DAILY  PO  (DURATION: YEAR)
     Route: 048

REACTIONS (3)
  - CEREBRAL HAEMORRHAGE [None]
  - HEADACHE [None]
  - VISION BLURRED [None]
